FAERS Safety Report 12111426 (Version 1)
Quarter: 2016Q1

REPORT INFORMATION
  Report Type: Spontaneous
  Country: GB (occurrence: GB)
  Receive Date: 20160224
  Receipt Date: 20160224
  Transmission Date: 20160526
  Serious: Yes (Other)
  Sender: FDA-Public Use
  Company Number: PHHY2016GB023229

PATIENT
  Sex: Male

DRUGS (1)
  1. ATORVASTATIN [Suspect]
     Active Substance: ATORVASTATIN
     Indication: PRODUCT USED FOR UNKNOWN INDICATION
     Dosage: TAKEN FOR SOME TIME AND TAKEN BEFORE GOING TO BED
     Route: 065

REACTIONS (4)
  - Feeling abnormal [Unknown]
  - Product taste abnormal [Unknown]
  - Oropharyngeal pain [Unknown]
  - Choking [Unknown]
